FAERS Safety Report 21059488 (Version 3)
Quarter: 2022Q3

REPORT INFORMATION
  Report Type: Report from Study
  Country: NZ (occurrence: NZ)
  Receive Date: 20220708
  Receipt Date: 20220919
  Transmission Date: 20221027
  Serious: Yes (Other)
  Sender: FDA-Public Use
  Company Number: NZ-JNJFOC-20220701751

PATIENT
  Age: 4 Decade
  Sex: Female
  Weight: 87 kg

DRUGS (6)
  1. REMICADE [Suspect]
     Active Substance: INFLIXIMAB
     Indication: Crohn^s disease
     Route: 041
     Dates: start: 2008, end: 2009
  2. AZATHIOPRINE [Concomitant]
     Active Substance: AZATHIOPRINE
  3. TACROLIMUS [Concomitant]
     Active Substance: TACROLIMUS
  4. ADALIMUMAB [Concomitant]
     Active Substance: ADALIMUMAB
  5. METHOTREXATE [Concomitant]
     Active Substance: METHOTREXATE
  6. PREDNISONE [Concomitant]
     Active Substance: PREDNISONE

REACTIONS (5)
  - Small intestinal stenosis [Unknown]
  - Short-bowel syndrome [Unknown]
  - Small intestinal resection [Unknown]
  - Adverse drug reaction [Unknown]
  - Drug ineffective [Unknown]

NARRATIVE: CASE EVENT DATE: 20080101
